FAERS Safety Report 26125409 (Version 1)
Quarter: 2025Q4

REPORT INFORMATION
  Report Type: Spontaneous
  Country: JP (occurrence: JP)
  Receive Date: 20251205
  Receipt Date: 20251205
  Transmission Date: 20260117
  Serious: Yes (Other)
  Sender: ORION PHARMA
  Company Number: JP-Orion Corporation ORION PHARMA-ENTC2025-0134

PATIENT
  Age: 71 Year
  Sex: Female

DRUGS (2)
  1. STALEVO [Suspect]
     Active Substance: CARBIDOPA\ENTACAPONE\LEVODOPA
     Indication: Parkinson^s disease
     Dosage: LEVODOPA 100 (500 MG)-CARBIDOPA-ENTACAPONE, 1 TABLET PER DOSE, 5 TIMES DAILY (6:30 A.M., 8:30 A.M.,
  2. CARBIDOPA\LEVODOPA [Concomitant]
     Active Substance: CARBIDOPA\LEVODOPA
     Indication: Parkinson^s disease
     Dosage: LEVODOPA 50 (300 MG)-CARBIDOPA

REACTIONS (4)
  - Seizure [Unknown]
  - Therapeutic product effect increased [Unknown]
  - Agitation [Unknown]
  - Dyskinesia [Unknown]

NARRATIVE: CASE EVENT DATE: 20251101
